FAERS Safety Report 12310783 (Version 1)
Quarter: 2016Q2

REPORT INFORMATION
  Report Type: Report from Study
  Country: BR (occurrence: BR)
  Receive Date: 20160427
  Receipt Date: 20160427
  Transmission Date: 20160815
  Serious: Yes (Other)
  Sender: FDA-Public Use
  Company Number: PHHY2016BR055858

PATIENT
  Sex: Female
  Weight: 65 kg

DRUGS (2)
  1. ACLASTA [Suspect]
     Active Substance: ZOLEDRONIC ACID
     Indication: OSTEOPOROSIS
     Dosage: 5 MG, Q12MO (ONCE A YEAR)
     Route: 042
     Dates: start: 20121105
  2. ACLASTA [Suspect]
     Active Substance: ZOLEDRONIC ACID
     Dosage: 5 MG, Q12MO (ONCE A YEAR)
     Route: 042
     Dates: start: 20141201

REACTIONS (6)
  - Thrombosis [Unknown]
  - Joint swelling [Unknown]
  - Pain in extremity [Unknown]
  - Ligament sprain [Unknown]
  - Fall [Unknown]
  - Foot fracture [Recovering/Resolving]
